FAERS Safety Report 10285217 (Version 2)
Quarter: 2014Q3

REPORT INFORMATION
  Report Type: Spontaneous
  Country: US (occurrence: US)
  Receive Date: 20140708
  Receipt Date: 20140708
  Transmission Date: 20150326
  Serious: Yes (Other)
  Sender: FDA-Public Use
  Company Number: US-009507513-2009-196374-NL

PATIENT
  Sex: Female
  Weight: 83.92 kg

DRUGS (1)
  1. NUVARING [Suspect]
     Active Substance: ETHINYL ESTRADIOL\ETONOGESTREL
     Indication: CONTRACEPTION
     Dosage: 1 DF, QM
     Route: 067
     Dates: start: 200407, end: 20080131

REACTIONS (5)
  - Arterial thrombosis [Unknown]
  - Coagulopathy [Unknown]
  - Embolism venous [Unknown]
  - Deep vein thrombosis [Unknown]
  - Embolism arterial [Unknown]

NARRATIVE: CASE EVENT DATE: 200801
